FAERS Safety Report 6984695 (Version 3)
Quarter: 2013Q4

REPORT INFORMATION
  Report Type: Report from Study
  Country: US (occurrence: US)
  Receive Date: 20090501
  Receipt Date: 20131202
  Transmission Date: 20140711
  Serious: Yes (Hospitalization, Other)
  Sender: FDA-Public Use
  Company Number: US-ALEXION-A200800014

PATIENT
  Age: 78 Year
  Sex: Female

DRUGS (18)
  1. SOLIRIS [Suspect]
     Indication: PAROXYSMAL NOCTURNAL HAEMOGLOBINURIA
     Dosage: 600 MG, QW
     Route: 042
     Dates: start: 20071005, end: 20071026
  2. SOLIRIS [Suspect]
     Dosage: 900 MG, Q2W
     Route: 042
     Dates: start: 20071102, end: 20080102
  3. REVLIMID [Concomitant]
  4. PROCRIT                            /00909301/ [Concomitant]
  5. DANAZOL [Concomitant]
  6. INSULIN [Concomitant]
     Indication: DIABETES MELLITUS
  7. GLIPIZIDE [Concomitant]
     Indication: DIABETES MELLITUS
  8. ATENOLOL [Concomitant]
     Indication: CARDIAC DISORDER
  9. NEXIUM [Concomitant]
     Indication: GASTROOESOPHAGEAL REFLUX DISEASE
  10. FOLIC ACID [Concomitant]
  11. VITAMIN B12                        /00091801/ [Concomitant]
  12. LISINOPRIL [Concomitant]
  13. HYDROCORTISONE [Concomitant]
  14. XANAX [Concomitant]
  15. MEGACE [Concomitant]
  16. DEFEROXAMINE [Concomitant]
  17. TYLENOL                            /00020001/ [Concomitant]
     Indication: PREMEDICATION
     Dosage: 600 MG, UNK
     Route: 048
     Dates: start: 200801, end: 200802
  18. BENADRYL                           /00000402/ [Concomitant]
     Indication: PREMEDICATION
     Dosage: 50 MG, UNK
     Route: 048
     Dates: start: 200801, end: 200802

REACTIONS (4)
  - Drug ineffective [Unknown]
  - Aplastic anaemia [Unknown]
  - Anaemia [Not Recovered/Not Resolved]
  - Serum ferritin increased [Not Recovered/Not Resolved]
